FAERS Safety Report 21720656 (Version 1)
Quarter: 2022Q4

REPORT INFORMATION
  Report Type: Spontaneous
  Country: US (occurrence: US)
  Receive Date: 20221213
  Receipt Date: 20221213
  Transmission Date: 20230112
  Serious: Yes (Other)
  Sender: FDA-Public Use
  Company Number: US-JNJFOC-20221141161

PATIENT
  Age: 98 Year
  Sex: Female
  Weight: 46.308 kg

DRUGS (1)
  1. SALICYLIC ACID [Suspect]
     Active Substance: SALICYLIC ACID
     Indication: Product used for unknown indication
     Dosage: ENOUGH TO COVER HER FACE 3 TO 4 TIMES SINCE LAST WEEK
     Route: 061
     Dates: start: 20221109

REACTIONS (2)
  - Blood pressure increased [Recovered/Resolved]
  - Hypersensitivity [Not Recovered/Not Resolved]

NARRATIVE: CASE EVENT DATE: 20220101
